FAERS Safety Report 6366947-4 (Version None)
Quarter: 2009Q3

REPORT INFORMATION
  Report Type: 
  Country: None (occurrence: None)
  Receive Date: 20090915
  Receipt Date: 20090901
  Transmission Date: 20100115
  Serious: Yes (Life-Threatening, Hospitalization)
  Sender: FDA-Public Use
  Company Number: FABR-1000844

PATIENT
  Age: 36 Year
  Sex: Male
  Weight: 40 kg

DRUGS (8)
  1. FABRAZYME [Suspect]
     Indication: FABRY'S DISEASE
     Dosage: 40 MG, Q2W; (3GRAM), (5GM) INTRAVENOUS
     Route: 042
     Dates: start: 20090301
  2. FABRAZYME [Suspect]
  3. FABRAZYME [Suspect]
  4. OLANZAPINE [Concomitant]
  5. RAMIPRIL [Concomitant]
  6. AMITRIPTYLINE HYDROCHLORIDE [Concomitant]
  7. ZOLPIDEM [Concomitant]
  8. OMEPRAZOLE [Concomitant]

REACTIONS (7)
  - ANAPHYLACTIC REACTION [None]
  - ANTIBODY TEST POSITIVE [None]
  - EAR DISORDER [None]
  - INFUSION RELATED REACTION [None]
  - PANIC ATTACK [None]
  - STRIDOR [None]
  - URTICARIA [None]
